FAERS Safety Report 12092707 (Version 1)
Quarter: 2016Q1

REPORT INFORMATION
  Report Type: Spontaneous
  Country: US (occurrence: None)
  Receive Date: 20160218
  Receipt Date: 20160218
  Transmission Date: 20160526
  Serious: No
  Sender: FDA-Public Use
  Company Number: None

PATIENT

DRUGS (2)
  1. ERGOCALCIFEROL ERGOCALCIFEROL [Suspect]
     Active Substance: ERGOCALCIFEROL
  2. CHOLECALCIFEROL [Suspect]
     Active Substance: CHOLECALCIFEROL
     Dosage: LIQUID  400 UNITS/ML

REACTIONS (1)
  - Product label confusion [None]
